FAERS Safety Report 7600125-3 (Version None)
Quarter: 2011Q2

REPORT INFORMATION
  Report Type: 
  Country: None (occurrence: None)
  Receive Date: 20110629
  Receipt Date: 20110616
  Transmission Date: 20111010
  Serious: Yes (Life-Threatening, Hospitalization, Other)
  Sender: FDA-Public Use
  Company Number: 2011MA007665

PATIENT
  Age: 71 Year
  Sex: Female

DRUGS (5)
  1. METOPROLOL TARTRATE [Concomitant]
  2. ATORVASTATIN [Concomitant]
  3. METFORMIN HYDROCHLORIDE [Suspect]
     Indication: DIABETES MELLITUS
  4. ASPIRIN [Concomitant]
  5. GLICLAZIDE [Concomitant]

REACTIONS (9)
  - HYPOGLYCAEMIA [None]
  - BRADYCARDIA [None]
  - GASTROENTERITIS [None]
  - RENAL FAILURE ACUTE [None]
  - CARDIAC ARREST [None]
  - CONTINUOUS HAEMODIAFILTRATION [None]
  - DEHYDRATION [None]
  - METABOLIC ACIDOSIS [None]
  - DRUG LEVEL ABOVE THERAPEUTIC [None]
